FAERS Safety Report 20576277 (Version 1)
Quarter: 2022Q1

REPORT INFORMATION
  Report Type: Spontaneous
  Country: US (occurrence: US)
  Receive Date: 20220310
  Receipt Date: 20220310
  Transmission Date: 20220423
  Serious: No
  Sender: FDA-Public Use
  Company Number: US-STRIDES ARCOLAB LIMITED-2022SP001158

PATIENT
  Age: 68 Year
  Sex: Female

DRUGS (7)
  1. PREDNISOLONE [Suspect]
     Active Substance: PREDNISOLONE
     Indication: Eye inflammation
     Dosage: 60 MILLIGRAM PER DAY
     Route: 048
  2. PREDNISOLONE [Suspect]
     Active Substance: PREDNISOLONE
     Dosage: 20 MILLIGRAM PER DAY (DOSE TAPERED WEEKLY UNTIL IT WAS REDUCED TO 20MG)
     Route: 048
  3. PREDNISOLONE [Suspect]
     Active Substance: PREDNISOLONE
     Dosage: UNK
     Route: 065
  4. PREDNISOLONE ACETATE [Concomitant]
     Active Substance: PREDNISOLONE ACETATE
     Indication: Haemorrhagic occlusive retinal vasculitis
     Dosage: UNK, QID
     Route: 061
  5. BROMFENAC [Concomitant]
     Active Substance: BROMFENAC SODIUM
     Indication: Haemorrhagic occlusive retinal vasculitis
     Dosage: UNK
     Route: 061
  6. VALACYCLOVIR HYDROCHLORIDE [Concomitant]
     Active Substance: VALACYCLOVIR HYDROCHLORIDE
     Indication: Haemorrhagic occlusive retinal vasculitis
     Dosage: 2 GRAM, TID
     Route: 048
  7. VANCOMYCIN [Concomitant]
     Active Substance: VANCOMYCIN
     Indication: Prophylaxis
     Dosage: UNK,  1.0MG/0.1ML

REACTIONS (1)
  - Adverse drug reaction [Unknown]
